FAERS Safety Report 6055743-3 (Version None)
Quarter: 2009Q1

REPORT INFORMATION
  Report Type: 
  Country: None (occurrence: None)
  Receive Date: 20090126
  Receipt Date: 20090112
  Transmission Date: 20090719
  Serious: Yes (Death, Hospitalization, Other)
  Sender: FDA-Public Use
  Company Number: 55916

PATIENT
  Age: 68 Year
  Sex: Male

DRUGS (2)
  1. EPIRUBICIN [Suspect]
     Indication: DIFFUSE LARGE B-CELL LYMPHOMA
  2. ETOPOSIDE [Suspect]
     Indication: CHEMOTHERAPY
     Dosage: 50MG/M2 IV DAY 1 ON WEEKS, 3,7, AND 11
     Route: 042

REACTIONS (3)
  - INTERSTITIAL LUNG DISEASE [None]
  - MUCOSAL INFLAMMATION [None]
  - NEUTROPENIA [None]
